FAERS Safety Report 9942107 (Version 1)
Quarter: 2014Q1

REPORT INFORMATION
  Report Type: Report from Study
  Country: US (occurrence: US)
  Receive Date: 20140303
  Receipt Date: 20140303
  Transmission Date: 20141002
  Serious: Yes (Other)
  Sender: FDA-Public Use
  Company Number: US-ABBVIE-13P-163-1043935-00

PATIENT
  Sex: Female

DRUGS (4)
  1. HUMIRA [Suspect]
     Indication: CROHN^S DISEASE
     Dates: start: 20120806, end: 20121115
  2. SYNTHROID [Concomitant]
     Indication: HYPOTHYROIDISM
  3. CELEXA [Concomitant]
     Indication: DEPRESSION
  4. CELEXA [Concomitant]
     Indication: ANXIETY

REACTIONS (2)
  - Ileostomy [Recovered/Resolved]
  - Incision site infection [Unknown]
